FAERS Safety Report 8322608-3 (Version None)
Quarter: 2012Q2

REPORT INFORMATION
  Report Type: 
  Country: None (occurrence: None)
  Receive Date: 20120430
  Receipt Date: 20120423
  Transmission Date: 20120825
  Serious: Yes (Hospitalization, Other)
  Sender: FDA-Public Use
  Company Number: DE-UCBSA-055442

PATIENT
  Age: 72 Year
  Sex: Female
  Weight: 60 kg

DRUGS (5)
  1. VITAMIN B COMPLEX CAP [Concomitant]
  2. PANTOPRAZOLE [Concomitant]
     Indication: GASTRITIS EROSIVE
     Route: 042
  3. RAMIPRIL [Concomitant]
     Indication: HYPERTENSION
     Route: 048
  4. KEPPRA [Suspect]
     Indication: CONVULSION
     Route: 042
     Dates: start: 20120402, end: 20120403
  5. KEPPRA [Suspect]
     Dosage: DAILY DOSE:2000MG
     Dates: start: 20120201, end: 20120401

REACTIONS (1)
  - THROMBOCYTOPENIA [None]
